FAERS Safety Report 4919672-8 (Version None)
Quarter: 2006Q1

REPORT INFORMATION
  Report Type: 
  Country: None (occurrence: None)
  Receive Date: 20060216
  Receipt Date: 20060121
  Transmission Date: 20060701
  Serious: Yes (Hospitalization)
  Sender: FDA-Public Use
  Company Number: ENTC2006- 0037

PATIENT
  Age: 90 Year

DRUGS (3)
  1. STALEVO 100 [Suspect]
     Indication: PARKINSON'S DISEASE
     Dosage: 100/25/200 MG QID, 150/37,5/200 MG ON, ORAL
     Route: 048
  2. ASPIRIN [Concomitant]
  3. NAPROXEN [Concomitant]

REACTIONS (1)
  - CEREBROVASCULAR ACCIDENT [None]
